FAERS Safety Report 7606995-7 (Version None)
Quarter: 2011Q3

REPORT INFORMATION
  Report Type: 
  Country: None (occurrence: None)
  Receive Date: 20110713
  Receipt Date: 20110711
  Transmission Date: 20111222
  Serious: Yes (Other)
  Sender: FDA-Public Use
  Company Number: CHPA2011US09113

PATIENT
  Age: 30 Year
  Sex: Female

DRUGS (1)
  1. VOLTAREN [Suspect]
     Indication: BACK PAIN
     Dosage: UNK, ONCE
     Route: 061
     Dates: start: 20110627, end: 20110627

REACTIONS (4)
  - HAEMATOCHEZIA [None]
  - OFF LABEL USE [None]
  - WRONG TECHNIQUE IN DRUG USAGE PROCESS [None]
  - DRUG ADMINISTERED AT INAPPROPRIATE SITE [None]
